FAERS Safety Report 7029171-8 (Version None)
Quarter: 2010Q4

REPORT INFORMATION
  Report Type: 
  Country: None (occurrence: None)
  Receive Date: 20101005
  Receipt Date: 20100929
  Transmission Date: 20110411
  Serious: Yes (Other)
  Sender: FDA-Public Use
  Company Number: US-RB-016059-10

PATIENT
  Age: 19 Year
  Sex: Male

DRUGS (1)
  1. SUBOXONE TABLET [Suspect]
     Dosage: DOSING DETAILS UNKNOWN
     Route: 065

REACTIONS (1)
  - CONVULSION [None]
